FAERS Safety Report 15800822 (Version 1)
Quarter: 2019Q1

REPORT INFORMATION
  Report Type: Spontaneous
  Country: US (occurrence: US)
  Receive Date: 20190109
  Receipt Date: 20190109
  Transmission Date: 20190417
  Serious: No
  Sender: FDA-Public Use
  Company Number: US-P+ L DEVELOPMENTS OF NEWYORK CORPORATION-2061008

PATIENT
  Age: 74 Year
  Sex: Female

DRUGS (3)
  1. FLUTICASONE PROPIONATE. [Concomitant]
     Active Substance: FLUTICASONE PROPIONATE
     Route: 045
     Dates: start: 20180305
  2. NASAL SALINE RINSE [Concomitant]
     Route: 065
     Dates: start: 20180305
  3. LORATADINE. [Suspect]
     Active Substance: LORATADINE
     Indication: HYPERSENSITIVITY
     Route: 048
     Dates: start: 20180306

REACTIONS (4)
  - Hypertension [Unknown]
  - Dyspepsia [Unknown]
  - Anxiety [Unknown]
  - Insomnia [Unknown]

NARRATIVE: CASE EVENT DATE: 20180306
